FAERS Safety Report 5338426-4 (Version None)
Quarter: 2007Q2

REPORT INFORMATION
  Report Type: 
  Country: None (occurrence: None)
  Receive Date: 20070322
  Receipt Date: 20060130
  Transmission Date: 20071010
  Serious: Yes (Other)
  Sender: FDA-Public Use
  Company Number: 200514920BCC

PATIENT
  Age: 79 Year
  Sex: Male
  Weight: 79.3795 kg

DRUGS (7)
  1. ALEVE (CAPLET) [Suspect]
     Indication: SPINAL DISORDER
     Dosage: 220 MG, BID, ORAL
     Route: 048
     Dates: start: 20050301
  2. ASPIRIN [Suspect]
     Dosage: ORAL
     Route: 048
     Dates: start: 20050701
  3. LIPITOR [Concomitant]
  4. METOPROLOL SUCCINATE [Concomitant]
  5. CENTRUM SILVER [Concomitant]
  6. ASCORBIC ACID [Concomitant]
  7. VITAMIN E [Concomitant]

REACTIONS (4)
  - ANAEMIA [None]
  - FAECES DISCOLOURED [None]
  - GASTROINTESTINAL HAEMORRHAGE [None]
  - HAEMORRHAGE [None]
